FAERS Safety Report 8263041-2 (Version None)
Quarter: 2012Q2

REPORT INFORMATION
  Report Type: 
  Country: None (occurrence: None)
  Receive Date: 20120405
  Receipt Date: 20120329
  Transmission Date: 20120825
  Serious: Yes (Other)
  Sender: FDA-Public Use
  Company Number: US-BAYER-2012-018991

PATIENT
  Age: 37 Year
  Sex: Female
  Weight: 78.005 kg

DRUGS (6)
  1. YAZ [Suspect]
     Dosage: UNK UNK, QD
     Route: 048
  2. BROMACLENSE [Concomitant]
  3. PHENTERMINE [Concomitant]
     Dosage: 15 MG, UNK
     Route: 048
  4. VICODIN [Concomitant]
     Indication: ABDOMINAL PAIN
     Dosage: 500MG-5MG, 10-JUL-2009 + 24-AUG-2009
     Route: 048
  5. CALCIUM D3 [Concomitant]
     Dosage: 1 TABLET
     Route: 048
  6. PENICILLIN VK [Concomitant]
     Dosage: 500 MG, UNK 24-AUG-2009
     Route: 048

REACTIONS (4)
  - PAIN [None]
  - THROMBOSIS [None]
  - THROMBOPHLEBITIS SUPERFICIAL [None]
  - EMBOLISM VENOUS [None]
